FAERS Safety Report 15873530 (Version 1)
Quarter: 2019Q1

REPORT INFORMATION
  Report Type: Other
  Country: US (occurrence: US)
  Receive Date: 20190126
  Receipt Date: 20190126
  Transmission Date: 20190417
  Serious: Yes (Hospitalization)
  Sender: FDA-Public Use
  Company Number: US-ACORDA-ACO_149470_2018

PATIENT
  Sex: Female

DRUGS (3)
  1. AMPYRA [Suspect]
     Active Substance: DALFAMPRIDINE
     Indication: MULTIPLE SCLEROSIS
     Dosage: 10 MG, BID
     Route: 048
     Dates: start: 2012, end: 201609
  2. AMPYRA [Suspect]
     Active Substance: DALFAMPRIDINE
     Indication: GAIT DISTURBANCE
     Dosage: 10 MG, BID
     Route: 048
     Dates: start: 201703, end: 201804
  3. AMPYRA [Suspect]
     Active Substance: DALFAMPRIDINE
     Dosage: 10 MG, BID
     Route: 048
     Dates: start: 20180502

REACTIONS (9)
  - Condition aggravated [Unknown]
  - Urinary incontinence [Recovered/Resolved]
  - Gait disturbance [Recovered/Resolved]
  - Therapy cessation [Recovered/Resolved]
  - Mental impairment [Recovered/Resolved]
  - Therapy cessation [Recovered/Resolved]
  - Ataxia [Unknown]
  - Confusional state [Unknown]
  - Dyskinesia [Recovered/Resolved]

NARRATIVE: CASE EVENT DATE: 201609
